FAERS Safety Report 5890231-6 (Version None)
Quarter: 2008Q3

REPORT INFORMATION
  Report Type: 
  Country: None (occurrence: None)
  Receive Date: 20080919
  Receipt Date: 20080910
  Transmission Date: 20090109
  Serious: Yes (Disabling)
  Sender: FDA-Public Use
  Company Number: GB-ABBOTT-95P-167-0148809-00

PATIENT
  Sex: Male
  Weight: 69.8 kg

DRUGS (2)
  1. RUFEN (IBUPROFEN) [Suspect]
     Indication: BACK PAIN
     Route: 048
  2. SINEMET [Concomitant]
     Indication: DRUG USE FOR UNKNOWN INDICATION
     Route: 048

REACTIONS (2)
  - DRUG INTERACTION [None]
  - EXTRAPYRAMIDAL DISORDER [None]
